FAERS Safety Report 8018650 (Version 3)
Quarter: 2013Q2

REPORT INFORMATION
  Report Type: Spontaneous
  Country: AU (occurrence: AU)
  Receive Date: 20110701
  Receipt Date: 20130418
  Transmission Date: 20140414
  Serious: Yes (Death, Other)
  Sender: FDA-Public Use
  Company Number: AU-ROCHE-786400

PATIENT
  Age: 50 Year
  Sex: Female
  Weight: 52 kg

DRUGS (4)
  1. ACTEMRA [Suspect]
     Indication: CASTLEMAN^S DISEASE
     Route: 042
  2. ACTEMRA [Suspect]
     Route: 042
  3. ACTEMRA [Suspect]
     Route: 042
  4. ACTEMRA [Suspect]
     Route: 042

REACTIONS (1)
  - Hepatic cancer [Fatal]
